FAERS Safety Report 22288387 (Version 3)
Quarter: 2023Q2

REPORT INFORMATION
  Report Type: Report from Study
  Country: US (occurrence: US)
  Receive Date: 20230505
  Receipt Date: 20230529
  Transmission Date: 20230721
  Serious: Yes (Hospitalization, Other)
  Sender: FDA-Public Use
  Company Number: US-HBP-2023US028763

PATIENT
  Sex: Male

DRUGS (1)
  1. VALCHLOR [Suspect]
     Active Substance: MECHLORETHAMINE
     Indication: Cutaneous T-cell lymphoma
     Dosage: THIN FILM, UNKNOWN
     Route: 061
     Dates: start: 202303, end: 2023

REACTIONS (7)
  - Cutaneous T-cell lymphoma [Unknown]
  - Condition aggravated [Unknown]
  - Dyspnoea [Unknown]
  - Aphonia [Unknown]
  - COVID-19 [Not Recovered/Not Resolved]
  - Off label use [Unknown]
  - Lung disorder [Not Recovered/Not Resolved]
